FAERS Safety Report 9840033 (Version 1)
Quarter: 2014Q1

REPORT INFORMATION
  Report Type: Spontaneous
  Country: US (occurrence: None)
  Receive Date: 20140117
  Receipt Date: 20140117
  Transmission Date: 20141002
  Serious: Yes (Death)
  Sender: FDA-Public Use
  Company Number: None

PATIENT
  Sex: Female
  Weight: 41.8 kg

DRUGS (2)
  1. PEGASYS PROCLICK [Suspect]
     Indication: HEPATITIS C
     Dates: start: 20100601, end: 20140101
  2. RIBAVIRIN [Suspect]
     Indication: HEPATITIS C
     Route: 048
     Dates: start: 20100601, end: 20140101

REACTIONS (1)
  - Myocardial infarction [None]
